FAERS Safety Report 13777306 (Version 2)
Quarter: 2017Q4

REPORT INFORMATION
  Report Type: Report from Study
  Country: GB (occurrence: GB)
  Receive Date: 20170720
  Receipt Date: 20171124
  Transmission Date: 20180320
  Serious: Yes (Death, Other)
  Sender: FDA-Public Use
  Company Number: GB-ROCHE-1438918

PATIENT
  Age: 76 Year
  Sex: Female

DRUGS (3)
  1. TOCILIZUMAB. [Suspect]
     Active Substance: TOCILIZUMAB
     Indication: RHEUMATOID ARTHRITIS
     Route: 065
     Dates: start: 20100816, end: 20130920
  2. METHOTREXATE. [Concomitant]
     Active Substance: METHOTREXATE
  3. RITUXIMAB. [Suspect]
     Active Substance: RITUXIMAB
     Indication: RHEUMATOID ARTHRITIS
     Route: 065
     Dates: start: 20090723, end: 20100216

REACTIONS (1)
  - Peritoneal carcinoma metastatic [Fatal]

NARRATIVE: CASE EVENT DATE: 20140203
